FAERS Safety Report 14675382 (Version 2)
Quarter: 2018Q2

REPORT INFORMATION
  Report Type: Spontaneous
  Country: US (occurrence: US)
  Receive Date: 20180323
  Receipt Date: 20180426
  Transmission Date: 20180711
  Serious: No
  Sender: FDA-Public Use
  Company Number: US-PFIZER INC-2018116086

PATIENT
  Age: 81 Year
  Sex: Female
  Weight: 41 kg

DRUGS (6)
  1. LIPITOR [Suspect]
     Active Substance: ATORVASTATIN CALCIUM
     Indication: BLOOD CHOLESTEROL INCREASED
     Dosage: 5 MG, 1X/DAY  (1/2 TABLET)
     Route: 048
     Dates: start: 201712, end: 20180317
  2. AREDSAN [Concomitant]
     Indication: EYE DISORDER
     Dosage: UNK, 2X/DAY
     Dates: start: 2016
  3. VITAMIN D [Concomitant]
     Active Substance: CHOLECALCIFEROL
     Indication: BONE DISORDER
     Dosage: UNK
     Dates: start: 201802
  4. VITAMIN B12 + FOLIC ACID [Concomitant]
     Indication: NERVOUS SYSTEM DISORDER
  5. VITAMIN B12 + FOLIC ACID [Concomitant]
     Indication: BLOOD IRON
     Dosage: 1000 MG, CYCLIC (ONE WEEK ON, ONE WEEK OFF)
     Route: 060
     Dates: start: 2013
  6. LIPITOR [Suspect]
     Active Substance: ATORVASTATIN CALCIUM
     Indication: HIGH DENSITY LIPOPROTEIN
     Dosage: 10 MG, 1X/DAY (QHS)
     Route: 048
     Dates: start: 20180105, end: 20180321

REACTIONS (7)
  - Intentional product misuse [Unknown]
  - Drug intolerance [Unknown]
  - Migraine [Not Recovered/Not Resolved]
  - Condition aggravated [Not Recovered/Not Resolved]
  - Headache [Unknown]
  - Drug dose omission [Unknown]
  - Pain in jaw [Not Recovered/Not Resolved]

NARRATIVE: CASE EVENT DATE: 2018
